FAERS Safety Report 13850920 (Version 2)
Quarter: 2017Q3

REPORT INFORMATION
  Report Type: Spontaneous
  Country: US (occurrence: US)
  Receive Date: 20170810
  Receipt Date: 20170816
  Transmission Date: 20171127
  Serious: No
  Sender: FDA-Public Use
  Company Number: US-BRISTOL-MYERS SQUIBB COMPANY-BMS-2017-071475

PATIENT
  Sex: Female
  Weight: 65.23 kg

DRUGS (1)
  1. OPDIVO [Suspect]
     Active Substance: NIVOLUMAB
     Indication: MALIGNANT MELANOMA
     Dosage: 200 MG, Q2WK
     Route: 042

REACTIONS (3)
  - Feeling abnormal [Unknown]
  - Skin odour abnormal [Unknown]
  - Asthenia [Unknown]
